FAERS Safety Report 9016435 (Version 2)
Quarter: 2013Q2

REPORT INFORMATION
  Report Type: Report from Study
  Country: JP (occurrence: JP)
  Receive Date: 20130116
  Receipt Date: 20130528
  Transmission Date: 20140414
  Serious: No
  Sender: FDA-Public Use
  Company Number: JP-GLAXOSMITHKLINE-B0858070A

PATIENT
  Sex: Male
  Weight: 67 kg

DRUGS (7)
  1. REVOLADE [Suspect]
     Indication: IDIOPATHIC THROMBOCYTOPENIC PURPURA
     Route: 048
     Dates: start: 20120314, end: 20120417
  2. REVOLADE [Suspect]
     Indication: IDIOPATHIC THROMBOCYTOPENIC PURPURA
     Route: 048
     Dates: start: 20120418
  3. METHYCOBAL [Concomitant]
     Indication: PROPHYLAXIS
     Route: 048
  4. JUVELA [Concomitant]
     Indication: PROPHYLAXIS
     Route: 048
  5. SOLANAX [Concomitant]
     Indication: PROPHYLAXIS
     Route: 048
  6. LENDORMIN [Concomitant]
     Indication: PROPHYLAXIS
     Route: 048
  7. RESLIN [Concomitant]
     Indication: PROPHYLAXIS
     Route: 048

REACTIONS (1)
  - No adverse event [Unknown]
